FAERS Safety Report 4467190-6 (Version None)
Quarter: 2004Q4

REPORT INFORMATION
  Report Type: 
  Country: None (occurrence: None)
  Receive Date: 20041006
  Receipt Date: 20040307
  Transmission Date: 20050328
  Serious: Yes (Death, Hospitalization)
  Sender: FDA-Public Use
  Company Number: US-MERCK-0403USA00719

PATIENT
  Age: 77 Year
  Sex: Female
  Weight: 60 kg

DRUGS (15)
  1. AMITRIPTYLINE HYDROCHLORIDE [Concomitant]
     Route: 048
  2. ASPIRIN [Concomitant]
     Route: 065
  3. LIPITOR [Suspect]
     Route: 065
     Dates: end: 20011101
  4. LIPITOR [Suspect]
     Route: 065
     Dates: start: 20011109, end: 20031112
  5. LIPITOR [Suspect]
     Route: 065
     Dates: start: 20031101, end: 20040106
  6. OS-CAL [Concomitant]
     Route: 065
  7. ZETIA [Suspect]
     Indication: LOW DENSITY LIPOPROTEIN INCREASED
     Route: 048
     Dates: start: 20030902, end: 20040106
  8. SYNTHROID [Concomitant]
     Indication: THYROID DISORDER
     Route: 048
  9. PRINIVIL [Concomitant]
     Indication: HYPERTENSION
     Route: 048
     Dates: start: 20000421
  10. PRINIVIL [Concomitant]
     Route: 048
  11. TOPROL-XL [Concomitant]
     Indication: HYPERTENSION
     Route: 048
     Dates: start: 20030613
  12. TOPROL-XL [Concomitant]
     Indication: ATRIAL FIBRILLATION
     Route: 048
     Dates: start: 20030613
  13. NITROFUR MAC [Concomitant]
     Route: 048
  14. DITROPAN [Concomitant]
     Route: 065
  15. VITAMIN E [Concomitant]
     Route: 065

REACTIONS (3)
  - HEPATIC FAILURE [None]
  - HEPATIC NECROSIS [None]
  - LOW DENSITY LIPOPROTEIN INCREASED [None]
